FAERS Safety Report 18652586 (Version 7)
Quarter: 2021Q1

REPORT INFORMATION
  Report Type: Report from Study
  Country: BR (occurrence: BR)
  Receive Date: 20201222
  Receipt Date: 20210210
  Transmission Date: 20210419
  Serious: Yes (Life-Threatening, Hospitalization, Other)
  Sender: FDA-Public Use
  Company Number: BR-GILEAD-2020-0510219

PATIENT
  Age: 43 Year
  Sex: Male
  Weight: 96 kg

DRUGS (142)
  1. TOCILIZUMAB. [Suspect]
     Active Substance: TOCILIZUMAB
     Dosage: UNK
     Route: 042
  2. ENOXAPARIN [Concomitant]
     Active Substance: ENOXAPARIN
     Dosage: UNK
     Dates: start: 20201122
  3. NORADRENALINE (NORPINEPHRINE) [Concomitant]
     Active Substance: NOREPINEPHRINE
     Indication: HYPOTENSION
     Dosage: UNK
     Dates: start: 20201127
  4. NORADRENALINE [NOREPINEPHRINE] [Concomitant]
     Active Substance: NOREPINEPHRINE
     Indication: HYPOTENSION
     Dosage: 20 ML
     Dates: start: 20201127
  5. OXYGEN. [Concomitant]
     Active Substance: OXYGEN
     Dosage: 65
     Dates: start: 20201125
  6. OXYGEN. [Concomitant]
     Active Substance: OXYGEN
     Route: 007
     Dates: start: 20201207
  7. OXYGEN. [Concomitant]
     Active Substance: OXYGEN
     Route: 007
     Dates: start: 20201211
  8. OXYGEN. [Concomitant]
     Active Substance: OXYGEN
     Route: 007
     Dates: start: 20201128
  9. OXYGEN. [Concomitant]
     Active Substance: OXYGEN
     Dates: start: 20201225
  10. OXYGEN. [Concomitant]
     Active Substance: OXYGEN
     Dates: start: 20201224
  11. OXYGEN. [Concomitant]
     Active Substance: OXYGEN
     Dates: start: 20201218
  12. OXYGEN. [Concomitant]
     Active Substance: OXYGEN
     Dosage: 65 %
     Dates: start: 20201219
  13. OXYGEN. [Concomitant]
     Active Substance: OXYGEN
     Dosage: 80 %
     Dates: start: 20201223
  14. OXYGEN. [Concomitant]
     Active Substance: OXYGEN
     Dosage: 40 %
     Route: 007
     Dates: start: 20201129
  15. OXYGEN. [Concomitant]
     Active Substance: OXYGEN
     Dosage: 35 %
     Dates: start: 20201227
  16. OXYGEN. [Concomitant]
     Active Substance: OXYGEN
     Dosage: 60 %
     Dates: start: 20201231
  17. OXYGEN. [Concomitant]
     Active Substance: OXYGEN
     Dosage: DOSE: 09 (UNIT NOT REPORTED)
     Dates: start: 20210104
  18. OXYGEN. [Concomitant]
     Active Substance: OXYGEN
     Dosage: 03 L/MIN
     Route: 055
     Dates: start: 20210109
  19. OXYGEN. [Concomitant]
     Active Substance: OXYGEN
     Dosage: MEDICATION DOSE? 30
     Dates: start: 20210115
  20. OXYGEN. [Concomitant]
     Active Substance: OXYGEN
     Dosage: MEDICATION DOSE? 04
     Dates: start: 20210114
  21. OXYGEN. [Concomitant]
     Active Substance: OXYGEN
     Dosage: SUBSEQUENT DATES: 13/JAN/2021
     Dates: start: 20210119
  22. PANTOPRAZOLE [Concomitant]
     Active Substance: PANTOPRAZOLE
     Dosage: UNK
     Dates: start: 20201122
  23. METOCLOPRAMIDE. [Concomitant]
     Active Substance: METOCLOPRAMIDE
     Dosage: 5 MG
     Dates: start: 20201122
  24. DEXAMETHASONE. [Concomitant]
     Active Substance: DEXAMETHASONE
     Indication: COVID-19
     Dosage: UNK
     Dates: start: 20201122
  25. DEXAMETHASONE. [Concomitant]
     Active Substance: DEXAMETHASONE
     Dosage: 6 MG
     Dates: start: 20201122
  26. OXYGEN. [Concomitant]
     Active Substance: OXYGEN
     Dosage: 60
     Dates: start: 20201123
  27. OXYGEN. [Concomitant]
     Active Substance: OXYGEN
     Dates: start: 20201226
  28. OXYGEN. [Concomitant]
     Active Substance: OXYGEN
     Route: 007
     Dates: start: 20201201
  29. OXYGEN. [Concomitant]
     Active Substance: OXYGEN
     Route: 007
     Dates: start: 20201208
  30. OXYGEN. [Concomitant]
     Active Substance: OXYGEN
     Route: 007
     Dates: start: 20201210
  31. OXYGEN. [Concomitant]
     Active Substance: OXYGEN
     Route: 007
     Dates: start: 20201212
  32. OXYGEN. [Concomitant]
     Active Substance: OXYGEN
     Route: 007
     Dates: start: 20201127
  33. OXYGEN. [Concomitant]
     Active Substance: OXYGEN
     Dosage: 50 %
     Route: 007
     Dates: start: 20201209
  34. OXYGEN. [Concomitant]
     Active Substance: OXYGEN
     Dates: start: 20201123
  35. OXYGEN. [Concomitant]
     Active Substance: OXYGEN
     Dosage: 40 %
     Dates: start: 20201231
  36. OXYGEN. [Concomitant]
     Active Substance: OXYGEN
     Dosage: MEDICATION DOSE? 06
     Dates: start: 20210112
  37. OXYGEN. [Concomitant]
     Active Substance: OXYGEN
     Dosage: MEDICATION DOSE? 02
     Dates: start: 20210111
  38. OXYGEN. [Concomitant]
     Active Substance: OXYGEN
     Dosage: MEDICATION DOSE? 05
     Dates: start: 20210112
  39. OXYGEN. [Concomitant]
     Active Substance: OXYGEN
     Dosage: MEDICATION DOSE? 01
     Dates: start: 20210111
  40. OXYGEN. [Concomitant]
     Active Substance: OXYGEN
     Dates: start: 20210120
  41. TOCILIZUMAB. [Suspect]
     Active Substance: TOCILIZUMAB
     Dosage: UNK
     Route: 042
  42. AZITHROMYCIN ANHYDROUS. [Concomitant]
     Active Substance: AZITHROMYCIN ANHYDROUS
     Indication: COVID-19
     Dosage: UNK
     Dates: start: 20201122
  43. DEXMEDETOMIDINE. [Concomitant]
     Active Substance: DEXMEDETOMIDINE
     Dosage: 100 UG
     Dates: start: 20201122
  44. CEFTRIAXONE. [Concomitant]
     Active Substance: CEFTRIAXONE
     Dosage: 2 G, QD
     Dates: start: 20201122
  45. OXYGEN. [Concomitant]
     Active Substance: OXYGEN
     Route: 007
     Dates: start: 20201214
  46. OXYGEN. [Concomitant]
     Active Substance: OXYGEN
     Dosage: 15 L/MIN
     Route: 055
     Dates: start: 20201124
  47. OXYGEN. [Concomitant]
     Active Substance: OXYGEN
     Dates: start: 20201217
  48. OXYGEN. [Concomitant]
     Active Substance: OXYGEN
     Route: 007
     Dates: start: 20201127
  49. OXYGEN. [Concomitant]
     Active Substance: OXYGEN
     Dates: start: 20201219
  50. OXYGEN. [Concomitant]
     Active Substance: OXYGEN
     Dates: start: 20201220
  51. OXYGEN. [Concomitant]
     Active Substance: OXYGEN
     Route: 007
     Dates: start: 20201213
  52. OXYGEN. [Concomitant]
     Active Substance: OXYGEN
     Dosage: 15 L/MIN
     Route: 055
     Dates: start: 20201126
  53. OXYGEN. [Concomitant]
     Active Substance: OXYGEN
     Route: 007
     Dates: start: 20201205
  54. OXYGEN. [Concomitant]
     Active Substance: OXYGEN
     Dosage: 100 %
     Dates: start: 20201222
  55. OXYGEN. [Concomitant]
     Active Substance: OXYGEN
     Dosage: 35 %
     Dates: start: 20201228
  56. OXYGEN. [Concomitant]
     Active Substance: OXYGEN
     Dosage: DOSE: 02 (UNIT NOT REPORTED)
     Dates: start: 20210105
  57. OXYGEN. [Concomitant]
     Active Substance: OXYGEN
     Dosage: DOSE 05
     Dates: start: 20210110
  58. OXYGEN. [Concomitant]
     Active Substance: OXYGEN
     Dosage: MEDICATION DOSE? 04
     Dates: start: 20210113
  59. OXYGEN. [Concomitant]
     Active Substance: OXYGEN
     Dosage: MEDICATION DOSE? 30
     Dates: start: 20210115
  60. OXYGEN. [Concomitant]
     Active Substance: OXYGEN
     Dates: start: 20210117
  61. OXYGEN. [Concomitant]
     Active Substance: OXYGEN
     Dates: start: 20210118
  62. REMDESIVIR. [Suspect]
     Active Substance: REMDESIVIR
     Indication: COVID-19 PNEUMONIA
     Dosage: MOST RECENT DOSE PRIOR TO AE 02DEC2020 AT 13:36
     Route: 042
     Dates: start: 20201123
  63. TOCILIZUMAB. [Suspect]
     Active Substance: TOCILIZUMAB
     Indication: COVID-19 PNEUMONIA
     Dosage: MOST RECENT DOSE PRIOR TO AE 24NOV2020 AT 09:45
     Route: 042
     Dates: start: 20201123
  64. TOCILIZUMAB. [Suspect]
     Active Substance: TOCILIZUMAB
     Dosage: UNK
     Route: 042
  65. AZITHROMYCIN ANHYDROUS. [Concomitant]
     Active Substance: AZITHROMYCIN ANHYDROUS
     Dosage: 500 MG
     Dates: start: 20201122
  66. PANTOPRAZOLE [Concomitant]
     Active Substance: PANTOPRAZOLE
     Dosage: 40 MG
     Dates: start: 20201122
  67. DIPYRONE [Concomitant]
     Active Substance: DIPYRONE
     Dosage: 1000 MG
     Dates: start: 20201122
  68. OXYGEN. [Concomitant]
     Active Substance: OXYGEN
     Dates: start: 20201224
  69. OXYGEN. [Concomitant]
     Active Substance: OXYGEN
     Dosage: 15 L/MIN
     Route: 055
     Dates: start: 20201124
  70. OXYGEN. [Concomitant]
     Active Substance: OXYGEN
     Dosage: 15 L/MIN
     Route: 055
     Dates: start: 20201123
  71. OXYGEN. [Concomitant]
     Active Substance: OXYGEN
     Dosage: 40 %
     Route: 007
     Dates: start: 20201128
  72. OXYGEN. [Concomitant]
     Active Substance: OXYGEN
     Dosage: 40 %
     Route: 007
     Dates: start: 20201204
  73. OXYGEN. [Concomitant]
     Active Substance: OXYGEN
     Dosage: 50 %
     Dates: start: 20201220
  74. OXYGEN. [Concomitant]
     Active Substance: OXYGEN
     Dosage: 60
     Dates: start: 20201125
  75. OXYGEN. [Concomitant]
     Active Substance: OXYGEN
     Dosage: 80 %
     Dates: start: 20201217
  76. OXYGEN. [Concomitant]
     Active Substance: OXYGEN
     Dosage: 60 %
     Dates: start: 20201215
  77. OXYGEN. [Concomitant]
     Active Substance: OXYGEN
     Dosage: DOSE 03
     Dates: start: 20210108
  78. OXYGEN. [Concomitant]
     Active Substance: OXYGEN
     Dosage: MEDICATION DOSE? 03
     Dates: start: 20210107
  79. OXYGEN. [Concomitant]
     Active Substance: OXYGEN
     Dosage: MEDICATION DOSE? 03
     Dates: start: 20210106
  80. OXYGEN. [Concomitant]
     Active Substance: OXYGEN
     Dosage: MEDICATION DOSE? 01
     Dates: start: 20210116
  81. REMDESIVIR. [Suspect]
     Active Substance: REMDESIVIR
     Dosage: 100 MG, QD
     Route: 042
     Dates: end: 20201202
  82. ENOXAPARIN [Concomitant]
     Active Substance: ENOXAPARIN
     Dosage: 40 MG
     Dates: start: 20201122
  83. DEXMEDETOMIDINE. [Concomitant]
     Active Substance: DEXMEDETOMIDINE
     Indication: ANXIETY
     Dosage: UNK
     Dates: start: 20201122
  84. OXYGEN. [Concomitant]
     Active Substance: OXYGEN
     Route: 007
     Dates: start: 20201129
  85. OXYGEN. [Concomitant]
     Active Substance: OXYGEN
     Dates: start: 20201225
  86. OXYGEN. [Concomitant]
     Active Substance: OXYGEN
     Dates: start: 20201218
  87. OXYGEN. [Concomitant]
     Active Substance: OXYGEN
     Route: 007
     Dates: start: 20201203
  88. OXYGEN. [Concomitant]
     Active Substance: OXYGEN
     Route: 007
     Dates: start: 20201206
  89. OXYGEN. [Concomitant]
     Active Substance: OXYGEN
     Dates: start: 20201223
  90. OXYGEN. [Concomitant]
     Active Substance: OXYGEN
     Route: 007
     Dates: start: 20201130
  91. OXYGEN. [Concomitant]
     Active Substance: OXYGEN
     Route: 007
     Dates: start: 20201204
  92. OXYGEN. [Concomitant]
     Active Substance: OXYGEN
     Dates: start: 20201221
  93. OXYGEN. [Concomitant]
     Active Substance: OXYGEN
     Dosage: 70 %
     Route: 007
     Dates: start: 20201203
  94. OXYGEN. [Concomitant]
     Active Substance: OXYGEN
     Dosage: 50 %
     Route: 007
     Dates: start: 20201210
  95. OXYGEN. [Concomitant]
     Active Substance: OXYGEN
     Dosage: 35 %
     Dates: start: 20201226
  96. OXYGEN. [Concomitant]
     Active Substance: OXYGEN
     Dosage: 60 %
     Route: 007
     Dates: start: 20201211
  97. OXYGEN. [Concomitant]
     Active Substance: OXYGEN
     Dosage: 60 %
     Route: 007
     Dates: start: 20201130
  98. OXYGEN. [Concomitant]
     Active Substance: OXYGEN
     Dosage: 35 %
     Dates: start: 20201230
  99. OXYGEN. [Concomitant]
     Active Substance: OXYGEN
     Dosage: DOSE: 02 (UNIT NOT REPORTED)
     Dates: start: 20210106
  100. OXYGEN. [Concomitant]
     Active Substance: OXYGEN
     Dosage: DOSE: 01 (UNIT NOT REPORTED)
     Dates: start: 20210105
  101. OXYGEN. [Concomitant]
     Active Substance: OXYGEN
     Dosage: MEDICATION DOSE? 04
     Dates: start: 20210107
  102. OXYGEN. [Concomitant]
     Active Substance: OXYGEN
     Dates: start: 20210118
  103. PIPERACILLIN. [Concomitant]
     Active Substance: PIPERACILLIN SODIUM
     Indication: URINARY TRACT INFECTION
     Dates: start: 20201209, end: 20201218
  104. TOCILIZUMAB. [Suspect]
     Active Substance: TOCILIZUMAB
     Dosage: UNK
     Route: 042
  105. CEFTRIAXONE SODIUM. [Concomitant]
     Active Substance: CEFTRIAXONE SODIUM
     Indication: COVID-19
     Dosage: UNK
     Dates: start: 20201122
  106. OXYGEN. [Concomitant]
     Active Substance: OXYGEN
     Dosage: 15 L/MIN
     Route: 055
     Dates: start: 20201123
  107. OXYGEN. [Concomitant]
     Active Substance: OXYGEN
     Dosage: 15 L/MIN
     Route: 055
     Dates: start: 20201126
  108. OXYGEN. [Concomitant]
     Active Substance: OXYGEN
     Route: 007
     Dates: start: 20201212
  109. OXYGEN. [Concomitant]
     Active Substance: OXYGEN
     Dates: start: 20201216
  110. OXYGEN. [Concomitant]
     Active Substance: OXYGEN
     Route: 007
     Dates: start: 20201208
  111. OXYGEN. [Concomitant]
     Active Substance: OXYGEN
     Route: 007
     Dates: start: 20201214
  112. OXYGEN. [Concomitant]
     Active Substance: OXYGEN
     Dosage: 45 %
     Route: 007
     Dates: start: 20201201
  113. OXYGEN. [Concomitant]
     Active Substance: OXYGEN
     Dosage: 60 %
     Route: 007
     Dates: start: 20201206
  114. OXYGEN. [Concomitant]
     Active Substance: OXYGEN
     Dosage: DOSE: NOT REPORTED
     Dates: start: 20210104
  115. OXYGEN. [Concomitant]
     Active Substance: OXYGEN
     Dosage: DOSE; 04
     Dates: start: 20210108
  116. OXYGEN. [Concomitant]
     Active Substance: OXYGEN
     Dosage: DOSE 02
     Dates: start: 20210110
  117. OXYGEN. [Concomitant]
     Active Substance: OXYGEN
     Dosage: MEDICATION DOSE? 01
     Dates: start: 20210116
  118. OXYGEN. [Concomitant]
     Active Substance: OXYGEN
     Dosage: SUBSEQUENT DATES: 19/JAN/2021
     Dates: start: 20210121
  119. VANCOMYCIN [Concomitant]
     Active Substance: VANCOMYCIN
     Indication: SEPTIC SHOCK
     Dosage: UNK UNK, QD
     Dates: start: 20201216, end: 20201226
  120. DIPYRONE [Concomitant]
     Active Substance: DIPYRONE
     Indication: COVID-19
     Dosage: UNK
     Dates: start: 20201122
  121. METOCLOPRAMIDE. [Concomitant]
     Active Substance: METOCLOPRAMIDE
     Dosage: UNK
     Dates: start: 20201122
  122. OXYGEN. [Concomitant]
     Active Substance: OXYGEN
     Dates: start: 20201222
  123. OXYGEN. [Concomitant]
     Active Substance: OXYGEN
     Route: 007
     Dates: start: 20201207
  124. OXYGEN. [Concomitant]
     Active Substance: OXYGEN
     Dosage: 35 %
     Dates: start: 20201229
  125. OXYGEN. [Concomitant]
     Active Substance: OXYGEN
     Dosage: 35 %
     Dates: start: 20201229
  126. OXYGEN. [Concomitant]
     Active Substance: OXYGEN
     Dosage: 35 %
     Dates: start: 20201230
  127. OXYGEN. [Concomitant]
     Active Substance: OXYGEN
     Dosage: MEDICATION DOSE? 05
     Dates: start: 20210109
  128. OXYGEN. [Concomitant]
     Active Substance: OXYGEN
     Dosage: MEDICATION DOSE? 05
     Dates: start: 20210104
  129. OXYGEN. [Concomitant]
     Active Substance: OXYGEN
     Dosage: MEDICATION DOSE? 03
     Dates: start: 20210114
  130. OXYGEN. [Concomitant]
     Active Substance: OXYGEN
     Dates: start: 20210117
  131. HEPARIN [Concomitant]
     Active Substance: HEPARIN SODIUM
     Indication: THROMBOSIS PROPHYLAXIS
     Dosage: DISCONTINUED ON 05?JAN?2021
     Dates: start: 20201217, end: 20210105
  132. VANCOMYCIN [Concomitant]
     Active Substance: VANCOMYCIN
     Dosage: 1000 MG
     Dates: start: 20201216, end: 20201226
  133. TOCILIZUMAB. [Suspect]
     Active Substance: TOCILIZUMAB
     Dosage: UNK
     Route: 042
     Dates: start: 20201124
  134. OXYGEN. [Concomitant]
     Active Substance: OXYGEN
     Dates: start: 20201221
  135. OXYGEN. [Concomitant]
     Active Substance: OXYGEN
     Route: 007
     Dates: start: 20201205
  136. OXYGEN. [Concomitant]
     Active Substance: OXYGEN
     Route: 007
     Dates: start: 20201202
  137. OXYGEN. [Concomitant]
     Active Substance: OXYGEN
     Dates: start: 20201216
  138. OXYGEN. [Concomitant]
     Active Substance: OXYGEN
     Route: 007
     Dates: start: 20201209
  139. OXYGEN. [Concomitant]
     Active Substance: OXYGEN
     Route: 007
     Dates: start: 20201213
  140. OXYGEN. [Concomitant]
     Active Substance: OXYGEN
     Route: 007
     Dates: start: 20201202
  141. OXYGEN. [Concomitant]
     Active Substance: OXYGEN
     Dosage: 35 %
     Dates: start: 20201228
  142. OXYGEN. [Concomitant]
     Active Substance: OXYGEN
     Dosage: 60 %
     Dates: start: 20201215

REACTIONS (1)
  - Liver injury [Recovering/Resolving]

NARRATIVE: CASE EVENT DATE: 20201212
